FAERS Safety Report 10073519 (Version 1)
Quarter: 2014Q2

REPORT INFORMATION
  Report Type: Report from Study
  Country: US (occurrence: US)
  Receive Date: 20140411
  Receipt Date: 20140411
  Transmission Date: 20141212
  Serious: Yes (Other)
  Sender: FDA-Public Use
  Company Number: US-JNJFOC-20140406760

PATIENT
  Age: 61 Year
  Sex: Male

DRUGS (1)
  1. NUCYNTA [Suspect]
     Indication: PRODUCT USED FOR UNKNOWN INDICATION
     Dosage: 900MG (75MG X 12)
     Route: 065
     Dates: start: 20131211

REACTIONS (4)
  - Intentional overdose [Unknown]
  - Blood pressure increased [Unknown]
  - Suicide attempt [Unknown]
  - Drug ineffective [Unknown]
